FAERS Safety Report 5563045-4 (Version None)
Quarter: 2007Q4

REPORT INFORMATION
  Report Type: 
  Country: None (occurrence: None)
  Receive Date: 20071217
  Receipt Date: 20071207
  Transmission Date: 20080405
  Serious: Yes (Death, Life-Threatening, Congenital Anomaly)
  Sender: FDA-Public Use
  Company Number: A0679854A

PATIENT
  Sex: Female

DRUGS (1)
  1. PAXIL [Suspect]
     Indication: DRUG USE FOR UNKNOWN INDICATION

REACTIONS (9)
  - ANXIETY [None]
  - CONGENITAL ANOMALY [None]
  - CONGENITAL CARDIOVASCULAR ANOMALY [None]
  - DEATH [None]
  - DRUG EXPOSURE DURING PREGNANCY [None]
  - HEART INJURY [None]
  - LUNG DISORDER [None]
  - PAIN [None]
  - SCAR [None]
